FAERS Safety Report 25496729 (Version 1)
Quarter: 2025Q3

REPORT INFORMATION
  Report Type: Spontaneous
  Country: CN (occurrence: CN)
  Receive Date: 20250701
  Receipt Date: 20250701
  Transmission Date: 20251020
  Serious: Yes (Hospitalization)
  Sender: ABBVIE
  Company Number: CN-ABBVIE-6347915

PATIENT
  Age: 60 Year
  Sex: Male
  Weight: 65 kg

DRUGS (6)
  1. VENCLEXTA [Suspect]
     Active Substance: VENETOCLAX
     Indication: Leukocytosis
     Dosage: 100 MILLIGRAM
     Route: 048
     Dates: start: 20250613, end: 20250615
  2. VENCLEXTA [Suspect]
     Active Substance: VENETOCLAX
     Indication: Leukocytosis
     Dosage: 300 MILLIGRAM
     Route: 048
     Dates: start: 20250616, end: 20250619
  3. CYTARABINE [Suspect]
     Active Substance: CYTARABINE
     Indication: Acute myeloid leukaemia
     Dosage: 0.2 MILLIGRAM
     Route: 041
     Dates: start: 20250611, end: 20250617
  4. SODIUM CHLORIDE [Concomitant]
     Active Substance: SODIUM CHLORIDE
     Indication: Acute myeloid leukaemia
     Dosage: 200 MILLIGRAM
     Route: 041
     Dates: start: 20250611, end: 20250617
  5. SODIUM CHLORIDE [Concomitant]
     Active Substance: SODIUM CHLORIDE
     Indication: Acute myeloid leukaemia
     Dosage: 45 MILLIGRAM
     Route: 041
     Dates: start: 20250611, end: 20250613
  6. IDARUBICIN HYDROCHLORIDE [Suspect]
     Active Substance: IDARUBICIN HYDROCHLORIDE
     Indication: Acute myeloid leukaemia
     Dosage: 20 MILLIGRAM
     Route: 041
     Dates: start: 20250611, end: 20250613

REACTIONS (2)
  - Red blood cell count decreased [Recovering/Resolving]
  - Platelet count decreased [Recovering/Resolving]

NARRATIVE: CASE EVENT DATE: 20250601
